FAERS Safety Report 8026524-6 (Version None)
Quarter: 2012Q1

REPORT INFORMATION
  Report Type: 
  Country: None (occurrence: None)
  Receive Date: 20120106
  Receipt Date: 20111230
  Transmission Date: 20120608
  Serious: Yes (Hospitalization, Other)
  Sender: FDA-Public Use
  Company Number: FR-BRISTOL-MYERS SQUIBB COMPANY-14581284

PATIENT
  Age: 53 Year
  Sex: Female

DRUGS (12)
  1. ACETAMINOPHEN W/ PROPOXYPHENE HCL [Suspect]
     Route: 048
  2. IMOVANE [Suspect]
     Route: 048
  3. GLUCOPHAGE [Suspect]
     Indication: TYPE 2 DIABETES MELLITUS
     Dosage: 2 DF- 2 TABS DAILY; 850MG
     Route: 048
     Dates: start: 20030101
  4. MEDIATOR [Suspect]
     Indication: TYPE 2 DIABETES MELLITUS
     Dosage: 1 DF- 2 TO 3 GTABS DAILY; 150MG
     Route: 048
     Dates: start: 20030101, end: 20050321
  5. DUPHALAC [Suspect]
     Route: 048
  6. LASIX [Suspect]
     Dates: start: 20020101
  7. PAROXETINE HCL [Suspect]
     Indication: DEPRESSION
     Route: 048
     Dates: end: 20040101
  8. PRAVASTATIN [Suspect]
     Dosage: FROM THE TIME OF DIAGNOSIS
     Route: 048
  9. POTASSIUM CHLORIDE [Suspect]
  10. PREVISCAN [Suspect]
     Route: 048
  11. IRBESARTAN [Suspect]
     Indication: HYPERTENSION
     Route: 048
  12. XANAX [Suspect]

REACTIONS (4)
  - PULMONARY ARTERIAL HYPERTENSION [None]
  - TRICUSPID VALVE DISEASE [None]
  - MITRAL VALVE INCOMPETENCE [None]
  - AORTIC VALVE INCOMPETENCE [None]
